FAERS Safety Report 8317696-4 (Version None)
Quarter: 2012Q2

REPORT INFORMATION
  Report Type: 
  Country: None (occurrence: None)
  Receive Date: 20120427
  Receipt Date: 20090708
  Transmission Date: 20120825
  Serious: No
  Sender: FDA-Public Use
  Company Number: US-TEVA-2009008296

PATIENT
  Sex: Female

DRUGS (3)
  1. NUVIGIL [Suspect]
     Route: 048
     Dates: start: 20090630
  2. NUVIGIL [Suspect]
     Indication: SLEEP APNOEA SYNDROME
     Route: 048
     Dates: start: 20090626, end: 20090629
  3. XYREM [Concomitant]

REACTIONS (3)
  - HYPOMANIA [None]
  - DEPRESSION [None]
  - ANXIETY [None]
